FAERS Safety Report 8928781 (Version 2)
Quarter: 2014Q2

REPORT INFORMATION
  Report Type: Spontaneous
  Country: US (occurrence: US)
  Receive Date: 20121128
  Receipt Date: 20131024
  Transmission Date: 20141212
  Serious: No
  Sender: FDA-Public Use
  Company Number: US-PFIZER INC-2012295552

PATIENT
  Age: 56 Year
  Sex: 0

DRUGS (6)
  1. MORPHINE SULFATE [Suspect]
     Dosage: UNK
  2. CELEXA [Suspect]
     Dosage: UNK
  3. CYMBALTA [Suspect]
     Dosage: UNK
  4. IMITREX [Suspect]
     Dosage: UNK
  5. PLAVIX [Suspect]
     Dosage: UNK
  6. ROCEPHIN [Suspect]
     Dosage: UNK

REACTIONS (1)
  - Drug hypersensitivity [Unknown]
